FAERS Safety Report 22034788 (Version 7)
Quarter: 2023Q2

REPORT INFORMATION
  Report Type: Report from Study
  Country: RO (occurrence: RO)
  Receive Date: 20230224
  Receipt Date: 20230529
  Transmission Date: 20230721
  Serious: Yes (Death, Hospitalization, Other)
  Sender: FDA-Public Use
  Company Number: RO-ROCHE-3282529

PATIENT
  Age: 65 Year
  Sex: Male
  Weight: 100 kg

DRUGS (20)
  1. BEVACIZUMAB [Suspect]
     Active Substance: BEVACIZUMAB
     Indication: Hepatocellular carcinoma
     Dosage: 1400 MG
     Route: 042
     Dates: start: 20221228
  2. ATEZOLIZUMAB [Suspect]
     Active Substance: ATEZOLIZUMAB
     Indication: Hepatocellular carcinoma
     Dosage: 1200 MG, EVERY 3 WEEKS
     Route: 042
     Dates: start: 20221228, end: 20230118
  3. FUROSEMIDE\SPIRONOLACTONE [Concomitant]
     Active Substance: FUROSEMIDE\SPIRONOLACTONE
     Dosage: UNK, 2X/DAY
     Dates: end: 20230128
  4. ESSENTIALE FORTE [Concomitant]
     Dosage: UNK, 1X/DAY
     Dates: end: 20230128
  5. URSODIOL [Concomitant]
     Active Substance: URSODIOL
     Dosage: 250 MG
     Dates: end: 20230216
  6. CONTROLOC [Concomitant]
     Active Substance: PANTOPRAZOLE SODIUM
     Dosage: 40 MG
     Dates: end: 20230216
  7. RIFAXIMIN [Concomitant]
     Active Substance: RIFAXIMIN
     Dosage: 200 MG
     Dates: end: 20230216
  8. PROPRANOLOL [Concomitant]
     Active Substance: PROPRANOLOL HYDROCHLORIDE
     Dosage: 10 MG, 2X/DAY (NUMBER OF UNITS IN THE INTERVAL 0.5 DAY)
     Dates: end: 20230216
  9. GLICLAZIDE [Concomitant]
     Active Substance: GLICLAZIDE
     Dosage: 60 MG, 1X/DAY
     Dates: end: 20230128
  10. DEXAMETHASONE [Concomitant]
     Active Substance: DEXAMETHASONE
     Dosage: UNK, 1X/DAY
     Dates: start: 20230118, end: 20230123
  11. FERROUS SULFATE [Concomitant]
     Active Substance: FERROUS SULFATE
     Dosage: UNK, 1X/DAY
     Dates: start: 20230118, end: 20230128
  12. FLUCONAZOLE [Concomitant]
     Active Substance: FLUCONAZOLE
     Dosage: UNK
  13. CER [Concomitant]
     Dosage: UNK
  14. VANCOMYCIN [Concomitant]
     Active Substance: VANCOMYCIN
     Dosage: UNK
  15. ALGIFEN [FENPIVERINIUM BROMIDE;METAMIZOLE SODIUM;PITOFENONE HYDROCHLOR [Concomitant]
     Dosage: UNK
  16. ALBUMIN (HUMAN) [Concomitant]
     Active Substance: ALBUMIN HUMAN
     Dosage: UNK
  17. ENOXAPARIN SODIUM [Concomitant]
     Active Substance: ENOXAPARIN SODIUM
     Dosage: UNK
  18. MEROPENEM [Concomitant]
     Active Substance: MEROPENEM
     Dosage: UNK
  19. AMINOSTERIL N HEPA [Concomitant]
     Dosage: UNK
  20. FUROSEMIDE [Concomitant]
     Active Substance: FUROSEMIDE
     Dosage: UNK

REACTIONS (5)
  - Intestinal ischaemia [Fatal]
  - Neutropenia [Recovered/Resolved]
  - Leukopenia [Recovered/Resolved]
  - Thrombocytopenia [Not Recovered/Not Resolved]
  - Anaemia [Not Recovered/Not Resolved]

NARRATIVE: CASE EVENT DATE: 20230117
